FAERS Safety Report 23353882 (Version 6)
Quarter: 2025Q2

REPORT INFORMATION
  Report Type: Spontaneous
  Country: US (occurrence: US)
  Receive Date: 20240101
  Receipt Date: 20250613
  Transmission Date: 20250717
  Serious: No
  Sender: SANOFI AVENTIS
  Company Number: US-SA-SAC20231222000434

PATIENT
  Age: 20 Year
  Sex: Female

DRUGS (3)
  1. DUPIXENT [Suspect]
     Active Substance: DUPILUMAB
     Indication: Dermatitis atopic
     Route: 058
  2. DUPIXENT [Suspect]
     Active Substance: DUPILUMAB
     Indication: Dermatitis
     Dosage: 300 MG, QOW
     Route: 058
     Dates: start: 202312
  3. HYDROXYZINE HYDROCHLORIDE [Concomitant]
     Active Substance: HYDROXYZINE HYDROCHLORIDE

REACTIONS (13)
  - Dermatitis [Unknown]
  - Rash [Unknown]
  - Injection site urticaria [Unknown]
  - Rash erythematous [Unknown]
  - Mental status changes [Unknown]
  - General physical health deterioration [Unknown]
  - Stress [Unknown]
  - Lymphadenopathy [Unknown]
  - Pruritus [Unknown]
  - Skin burning sensation [Unknown]
  - Rash [Not Recovered/Not Resolved]
  - Eczema [Recovering/Resolving]
  - Product use in unapproved indication [Unknown]

NARRATIVE: CASE EVENT DATE: 20231201
